FAERS Safety Report 6247997-5 (Version None)
Quarter: 2009Q2

REPORT INFORMATION
  Report Type: 
  Country: None (occurrence: None)
  Receive Date: 20090626
  Receipt Date: 20090617
  Transmission Date: 20091009
  Serious: Yes (Other)
  Sender: FDA-Public Use
  Company Number: CN-GILEAD-E2B_00000368

PATIENT
  Age: 31 Year
  Sex: Male

DRUGS (1)
  1. HEPSERA [Suspect]
     Indication: CHRONIC HEPATITIS
     Dosage: 10MG PER DAY
     Route: 048
     Dates: start: 20070601

REACTIONS (2)
  - BLOOD BILIRUBIN INCREASED [None]
  - PAIN IN EXTREMITY [None]
